FAERS Safety Report 25492754 (Version 1)
Quarter: 2025Q2

REPORT INFORMATION
  Report Type: Spontaneous
  Country: CN (occurrence: CN)
  Receive Date: 20250630
  Receipt Date: 20250630
  Transmission Date: 20250717
  Serious: Yes (Hospitalization)
  Sender: ACCORD
  Company Number: None

PATIENT
  Age: 41 Year
  Sex: Female

DRUGS (3)
  1. TRASTUZUMAB [Suspect]
     Active Substance: TRASTUZUMAB
     Indication: Invasive lobular breast carcinoma
     Dosage: 412 MILLIGRAM, QD, IV DRIP, STRENGTH: 150 MG
     Route: 042
     Dates: start: 20250526, end: 20250526
  2. CYCLOPHOSPHAMIDE [Suspect]
     Active Substance: CYCLOPHOSPHAMIDE
     Indication: Invasive lobular breast carcinoma
     Dosage: 900 MILLIGRAM, QD, IV DRIP
     Route: 042
     Dates: start: 20250526, end: 20250526
  3. DOCETAXEL [Suspect]
     Active Substance: DOCETAXEL
     Indication: Invasive lobular breast carcinoma
     Dosage: 110 MILLIGRAM, QD, IV DRIP
     Route: 042
     Dates: start: 20250526, end: 20250526

REACTIONS (1)
  - Myelosuppression [Recovering/Resolving]

NARRATIVE: CASE EVENT DATE: 20250602
